FAERS Safety Report 5013715-1 (Version None)
Quarter: 2006Q2

REPORT INFORMATION
  Report Type: 
  Country: None (occurrence: None)
  Receive Date: 20060530
  Receipt Date: 20060316
  Transmission Date: 20061013
  Serious: No
  Sender: FDA-Public Use
  Company Number: US-GLAXOSMITHKLINE-A0597888A

PATIENT
  Sex: Male

DRUGS (1)
  1. ARRANON [Suspect]
     Route: 042
     Dates: start: 20060301, end: 20060301

REACTIONS (1)
  - BLOOD CREATININE INCREASED [None]
